FAERS Safety Report 7942698-7 (Version None)
Quarter: 2011Q4

REPORT INFORMATION
  Report Type: 
  Country: None (occurrence: None)
  Receive Date: 20111122
  Receipt Date: 20110816
  Transmission Date: 20120403
  Serious: Yes (Other)
  Sender: FDA-Public Use
  Company Number: PHEH2011US01279

PATIENT
  Age: 62 Year
  Sex: Male

DRUGS (11)
  1. DOCUSATE SODIUM (DOCUSATE SODIUM) CAPSULE [Concomitant]
  2. VITAMIN D3 (COLECALCIFEROL) TABLET [Concomitant]
  3. BISACODYL (BISACODYL) SUPPOSITORY [Concomitant]
  4. IBUPROFEN [Concomitant]
  5. BACLOFEN (BACLOFEN) TABLET, 10 MG [Concomitant]
  6. DALFAMPRIDINE [Concomitant]
  7. CARBAMIDE PEROXIDE (UREA HYDROGEN PEROXIDE), 6.5% [Concomitant]
  8. DOXAZOSIN MESILATE (DOXAZOSIN MESILATE) TABLET [Concomitant]
  9. GILENYA [Suspect]
     Indication: MULTIPLE SCLEROSIS
     Dosage: 0.5 MG, QD, ORAL
     Route: 048
     Dates: start: 20110718, end: 20110808
  10. GABAPENTIN (GABAPENTIN) CAPSULE [Concomitant]
  11. VARDENAFIL HYDROCHLORIDE (VARDENAFIL HYDROCHLORIDE) TABLET, 20 MG [Concomitant]

REACTIONS (3)
  - VISION BLURRED [None]
  - MACULAR OEDEMA [None]
  - VISUAL ACUITY REDUCED [None]
